FAERS Safety Report 23164580 (Version 1)
Quarter: 2023Q4

REPORT INFORMATION
  Report Type: Spontaneous
  Country: US (occurrence: None)
  Receive Date: 20231108
  Receipt Date: 20231108
  Transmission Date: 20240110
  Serious: Yes (Death)
  Sender: FDA-Public Use
  Company Number: None

PATIENT
  Age: 78 Year
  Sex: Male
  Weight: 119 kg

DRUGS (2)
  1. ENFORTUMAB VEDOTIN [Suspect]
     Active Substance: ENFORTUMAB VEDOTIN
     Indication: Bladder cancer
     Dosage: OTHER FREQUENCY : D1+D8;?
     Route: 042
     Dates: start: 20230822, end: 20230829
  2. ENFORTUMAB VEDOTIN [Suspect]
     Active Substance: ENFORTUMAB VEDOTIN
     Indication: Bladder cancer
     Dosage: OTHER FREQUENCY : D1+D8;?
     Route: 042
     Dates: start: 20230822, end: 20230829

REACTIONS (8)
  - Toxic epidermal necrolysis [None]
  - Lactic acidosis [None]
  - Febrile neutropenia [None]
  - Stevens-Johnson syndrome [None]
  - Septic shock [None]
  - Tachypnoea [None]
  - Hypoxia [None]
  - Skin infection [None]

NARRATIVE: CASE EVENT DATE: 20230913
